FAERS Safety Report 10465690 (Version 2)
Quarter: 2014Q3

REPORT INFORMATION
  Report Type: Report from Study
  Country: US (occurrence: US)
  Receive Date: 20140919
  Receipt Date: 20140919
  Transmission Date: 20150326
  Serious: Yes (Other)
  Sender: FDA-Public Use
  Company Number: US-ALEXION PHARMACEUTICALS INC-A200700287

PATIENT
  Sex: Male

DRUGS (1)
  1. SOLIRIS [Suspect]
     Active Substance: ECULIZUMAB
     Indication: PAROXYSMAL NOCTURNAL HAEMOGLOBINURIA
     Dosage: UNK
     Route: 042

REACTIONS (13)
  - Transfusion [Not Recovered/Not Resolved]
  - Quality of life decreased [Unknown]
  - Lethargy [Recovered/Resolved]
  - Haemolysis [Unknown]
  - Dysphagia [Unknown]
  - Abdominal pain [Unknown]
  - Malaise [Recovered/Resolved]
  - Blood count abnormal [Not Recovered/Not Resolved]
  - Haemoglobin decreased [Not Recovered/Not Resolved]
  - Fatigue [Unknown]
  - Dyspnoea [Not Recovered/Not Resolved]
  - Haemoglobinuria [Recovered/Resolved]
  - Blood lactate dehydrogenase increased [Recovering/Resolving]
